FAERS Safety Report 19302202 (Version 1)
Quarter: 2021Q2

REPORT INFORMATION
  Report Type: Spontaneous
  Country: IT (occurrence: IT)
  Receive Date: 20210525
  Receipt Date: 20210525
  Transmission Date: 20210717
  Serious: Yes (Hospitalization)
  Sender: FDA-Public Use
  Company Number: IT-TEVA-2021-IT-1915094

PATIENT
  Age: 54 Year
  Sex: Male

DRUGS (3)
  1. PEMBROLIZUMAB. [Suspect]
     Active Substance: PEMBROLIZUMAB
     Indication: NON-SMALL CELL LUNG CANCER METASTATIC
     Dosage: EVERY 21 DAYS
     Route: 065
  2. PEMETREXED. [Suspect]
     Active Substance: PEMETREXED
     Indication: NON-SMALL CELL LUNG CANCER METASTATIC
     Dosage: DOSE: 500 MG/MQ; EVERY 21 DAYS
     Route: 065
  3. CARBOPLATIN. [Suspect]
     Active Substance: CARBOPLATIN
     Indication: NON-SMALL CELL LUNG CANCER METASTATIC
     Dosage: DOSE: AUC5; EVERY 21 DAYS
     Route: 065

REACTIONS (4)
  - Paraneoplastic syndrome [Recovering/Resolving]
  - Atrial fibrillation [Recovered/Resolved]
  - Pericardial effusion [Recovering/Resolving]
  - Pericarditis [Recovering/Resolving]
